FAERS Safety Report 8426329-8 (Version None)
Quarter: 2012Q2

REPORT INFORMATION
  Report Type: 
  Country: None (occurrence: None)
  Receive Date: 20120611
  Receipt Date: 20120531
  Transmission Date: 20120825
  Serious: Yes (Other)
  Sender: FDA-Public Use
  Company Number: BR-AMGEN-BRASP2012034050

PATIENT
  Age: 63 Year
  Sex: Female
  Weight: 75 kg

DRUGS (4)
  1. ATENOLOL [Concomitant]
     Dosage: UNK
  2. ENBREL [Suspect]
     Indication: RHEUMATOID ARTHRITIS
     Dosage: 50 MG, ONCE WEEKLY
     Route: 058
  3. ENBREL [Suspect]
     Dosage: 25 MG, 2X/WEEK
     Route: 058
  4. INSULIN [Concomitant]
     Dosage: 30 IU, UNK

REACTIONS (2)
  - WHEELCHAIR USER [None]
  - CONDITION AGGRAVATED [None]
